APPROVED DRUG PRODUCT: SULFAMETHOXAZOLE AND TRIMETHOPRIM
Active Ingredient: SULFAMETHOXAZOLE; TRIMETHOPRIM
Strength: 800MG;160MG
Dosage Form/Route: TABLET;ORAL
Application: A076899 | Product #002 | TE Code: AB
Applicant: AMNEAL PHARMACEUTICALS NY LLC
Approved: Jan 27, 2005 | RLD: No | RS: No | Type: RX